FAERS Safety Report 11465650 (Version 2)
Quarter: 2016Q1

REPORT INFORMATION
  Report Type: Spontaneous
  Country: DE (occurrence: DE)
  Receive Date: 20150907
  Receipt Date: 20160301
  Transmission Date: 20160525
  Serious: Yes (Hospitalization)
  Sender: FDA-Public Use
  Company Number: DE-009507513-1508DEU007226

PATIENT
  Age: 59 Year
  Sex: Female
  Weight: 96 kg

DRUGS (40)
  1. HYDROCHLOROTHIAZIDE. [Concomitant]
     Active Substance: HYDROCHLOROTHIAZIDE
     Dosage: 25 UNK, QD
     Dates: start: 20150806, end: 20150812
  2. OXYGESIC [Concomitant]
     Active Substance: OXYCODONE
     Dosage: 10 MG, QID
     Dates: start: 20150806, end: 20150812
  3. METOCLOPRAMIDE HYDROCHLORIDE. [Concomitant]
     Active Substance: METOCLOPRAMIDE HYDROCHLORIDE
     Dosage: 10 MG, TID
     Dates: start: 20150806, end: 20150812
  4. TARGIN [Concomitant]
     Active Substance: NALOXONE HYDROCHLORIDE\OXYCODONE HYDROCHLORIDE
     Dosage: 5 MG, BID
     Dates: start: 20150806, end: 20150812
  5. TREVILOR RETARD [Concomitant]
     Active Substance: VENLAFAXINE HYDROCHLORIDE
     Dosage: 37.5 MG, BID
  6. MARCUMAR [Concomitant]
     Active Substance: PHENPROCOUMON
     Dosage: UNK
  7. COTRIM D.S. [Concomitant]
     Active Substance: SULFAMETHOXAZOLE\TRIMETHOPRIM
     Dosage: 960 MG, QD
  8. ACIC [Concomitant]
     Active Substance: ACYCLOVIR
     Dosage: 200 UNK, QD
     Dates: start: 20150806, end: 20150812
  9. TOREM [Concomitant]
     Active Substance: TORSEMIDE
     Dosage: 10 MG, BID
     Dates: start: 20150806, end: 20150812
  10. NOXAFIL [Suspect]
     Active Substance: POSACONAZOLE
     Dosage: 400 MG, QD
     Route: 048
     Dates: start: 20150809, end: 20150811
  11. DECORTIN [Concomitant]
     Active Substance: PREDNISONE
     Dosage: 20 MG, QD
     Dates: start: 20150806, end: 20150812
  12. CALCIUM ACETATE. [Concomitant]
     Active Substance: CALCIUM ACETATE
     Dosage: 500 MG, BID
     Dates: start: 20150806, end: 20150812
  13. REDUCTO (PHENDIMETRAZINE TARTRATE) [Concomitant]
     Dosage: 2 DF, TID
  14. MAGNESIUM OPTOPAN [Concomitant]
     Dosage: 2 DF, TID
     Dates: start: 20150806, end: 20150812
  15. CYMBALTA [Concomitant]
     Active Substance: DULOXETINE HYDROCHLORIDE
     Dosage: 60 MG, QD
     Dates: start: 20150806, end: 20150812
  16. SULTANOL [Concomitant]
     Active Substance: ALBUTEROL SULFATE
     Dosage: 10 ML, QD
     Dates: start: 20150806, end: 20150812
  17. LYRICA [Concomitant]
     Active Substance: PREGABALIN
     Dosage: 50 UNK, QD
     Dates: start: 20150806, end: 20150812
  18. VIGANTOLETTEN [Concomitant]
     Active Substance: CHOLECALCIFEROL
     Dosage: 1000 IE, QD
  19. CLEXANE (ENOXAPARIN SODIUM) [Concomitant]
     Active Substance: ENOXAPARIN SODIUM
     Dosage: 0.6 UNK, UNK
     Dates: start: 20150806, end: 20150812
  20. SODIUM CHLORIDE. [Concomitant]
     Active Substance: SODIUM CHLORIDE
     Dosage: 0.9 %,  QD
     Dates: start: 20150806, end: 20150812
  21. ZOPICLONE [Concomitant]
     Active Substance: ZOPICLONE
     Dosage: 7.5 UNK, QD
  22. ACYCLOVIR. [Concomitant]
     Active Substance: ACYCLOVIR
     Dosage: 200 MG, BID
  23. DECORTIN [Concomitant]
     Active Substance: PREDNISONE
     Dosage: 10 MG, QD
  24. EUTHYROX [Concomitant]
     Active Substance: LEVOTHYROXINE SODIUM
     Dosage: 75 MICROGRAM, QD
     Dates: start: 20150806, end: 20150812
  25. POTASSIUM (UNSPECIFIED) [Concomitant]
     Active Substance: POTASSIUM
     Dosage: UNK
     Dates: start: 20150806, end: 20150812
  26. CELLCEPT [Concomitant]
     Active Substance: MYCOPHENOLATE MOFETIL\MYCOPHENOLATE MOFETIL HYDROCHLORIDE
     Dosage: 500 MG, BID
  27. AMPHOTERICIN B. [Concomitant]
     Active Substance: AMPHOTERICIN B
     Dosage: UNK, TID
  28. PROGRAF [Concomitant]
     Active Substance: TACROLIMUS\TACROLIMUS ANHYDROUS
     Dosage: 0.5 MG, BID
     Dates: start: 20150806, end: 20150810
  29. ZITHROMAX [Concomitant]
     Active Substance: AZITHROMYCIN DIHYDRATE
     Dosage: 250 MG, QD
     Dates: start: 20150806, end: 20150812
  30. PANTOZOL [Concomitant]
     Active Substance: PANTOPRAZOLE SODIUM
     Dosage: 40 MG, QD
     Dates: start: 20150806, end: 20150812
  31. MOVICOL [Concomitant]
     Active Substance: POLYETHYLENE GLYCOL 3350\POTASSIUM CHLORIDE\SODIUM BICARBONATE\SODIUM CHLORIDE
     Dosage: UNK, BID
     Dates: start: 20150806, end: 20150812
  32. FORTUM [Concomitant]
     Active Substance: CEFTAZIDIME
     Dosage: 2 G, UNK
     Dates: start: 20150806, end: 20150812
  33. KALINOR [Concomitant]
     Active Substance: POTASSIUM CITRATE
     Dosage: 3 DF, TID
  34. GABAPENTIN. [Concomitant]
     Active Substance: GABAPENTIN
     Dosage: 200 (UNITS NOT PROVIDED), BID
  35. NOXAFIL [Suspect]
     Active Substance: POSACONAZOLE
     Indication: ASPERGILLUS INFECTION
     Dosage: 300 MG, QD
     Route: 048
     Dates: start: 20150804, end: 20150808
  36. PROGRAF [Concomitant]
     Active Substance: TACROLIMUS\TACROLIMUS ANHYDROUS
     Dosage: 1 MG, BID
     Dates: start: 20150811, end: 20150812
  37. PROGRAF [Concomitant]
     Active Substance: TACROLIMUS\TACROLIMUS ANHYDROUS
     Dosage: 3.5 MG, BID
  38. XARELTO [Concomitant]
     Active Substance: RIVAROXABAN
     Dosage: 20 UNK, BID
     Dates: start: 20150806, end: 20150812
  39. NOVALGIN (DIPYRONE) [Concomitant]
     Active Substance: DIPYRONE
     Dosage: 500 UNK, QID
     Dates: start: 20150806, end: 20150812
  40. SIMVAHEXAL [Concomitant]
     Active Substance: SIMVASTATIN
     Dosage: 20 UNK, QD
     Dates: start: 20150806, end: 20150812

REACTIONS (6)
  - Visual impairment [Recovering/Resolving]
  - Dizziness [Recovering/Resolving]
  - Rash [Recovering/Resolving]
  - Tremor [Recovering/Resolving]
  - Neuralgia [Recovering/Resolving]
  - Acute kidney injury [Recovering/Resolving]

NARRATIVE: CASE EVENT DATE: 20150806
